FAERS Safety Report 10267539 (Version 2)
Quarter: 2014Q3

REPORT INFORMATION
  Report Type: Spontaneous
  Country: US (occurrence: US)
  Receive Date: 20140630
  Receipt Date: 20140711
  Transmission Date: 20150326
  Serious: Yes (Death, Other)
  Sender: FDA-Public Use
  Company Number: US-PFIZER INC-2014176369

PATIENT
  Age: 62 Year
  Sex: Female

DRUGS (4)
  1. DECADRON [Concomitant]
     Active Substance: DEXAMETHASONE
     Dosage: 4 MG, 2X/DAY
     Route: 048
     Dates: start: 20131015
  2. CAMPTOSAR [Suspect]
     Active Substance: IRINOTECAN HYDROCHLORIDE
     Indication: GLIOBLASTOMA MULTIFORME
     Dosage: UNK
  3. NORCO [Concomitant]
     Active Substance: ACETAMINOPHEN\HYDROCODONE BITARTRATE
     Dosage: 325/7.5 1-2 TAB Q4H PRN
     Route: 048
  4. AVASTIN [Suspect]
     Active Substance: BEVACIZUMAB
     Indication: GLIOBLASTOMA MULTIFORME
     Dosage: UNK

REACTIONS (5)
  - Confusional state [Unknown]
  - Off label use [Unknown]
  - Depressed level of consciousness [Unknown]
  - Disease progression [Fatal]
  - Glioblastoma multiforme [Fatal]

NARRATIVE: CASE EVENT DATE: 201406
